FAERS Safety Report 14852476 (Version 9)
Quarter: 2020Q4

REPORT INFORMATION
  Report Type: Spontaneous
  Country: US (occurrence: US)
  Receive Date: 20180507
  Receipt Date: 20201203
  Transmission Date: 20210113
  Serious: No
  Sender: FDA-Public Use
  Company Number: US-PFIZER INC-2018105023

PATIENT
  Age: 52 Year
  Sex: Female

DRUGS (2)
  1. IBRANCE [Suspect]
     Active Substance: PALBOCICLIB
     Dosage: 125 MG, CYCLIC (ONCE A DAY, DAY 1 TO 21)
     Route: 048
     Dates: start: 20171223
  2. IBRANCE [Suspect]
     Active Substance: PALBOCICLIB
     Indication: BREAST CANCER
     Dosage: 125 MG, CYCLIC (21 DAYS/1-21)/ DAILY
     Route: 048
     Dates: start: 20171222

REACTIONS (12)
  - Influenza like illness [Unknown]
  - Headache [Unknown]
  - Bone pain [Unknown]
  - Nasopharyngitis [Unknown]
  - Back pain [Unknown]
  - Pain in extremity [Unknown]
  - Nausea [Unknown]
  - Paraesthesia [Unknown]
  - Myalgia [Unknown]
  - Musculoskeletal discomfort [Unknown]
  - Dysgeusia [Unknown]
  - Neuralgia [Unknown]

NARRATIVE: CASE EVENT DATE: 20180502
